FAERS Safety Report 18285649 (Version 2)
Quarter: 2021Q1

REPORT INFORMATION
  Report Type: Spontaneous
  Country: US (occurrence: US)
  Receive Date: 20200918
  Receipt Date: 20210311
  Transmission Date: 20210419
  Serious: No
  Sender: FDA-Public Use
  Company Number: US-BIOMARINAP-US-2020-132293

PATIENT
  Sex: Female
  Weight: 52.97 kg

DRUGS (1)
  1. KUVAN [Suspect]
     Active Substance: SAPROPTERIN DIHYDROCHLORIDE
     Indication: PHENYLKETONURIA
     Dosage: 1100 MILLIGRAM, QD
     Route: 048

REACTIONS (4)
  - Amino acid level increased [Unknown]
  - Abdominal pain upper [Unknown]
  - Memory impairment [Unknown]
  - Amino acid level decreased [Unknown]
